FAERS Safety Report 4484441-2 (Version None)
Quarter: 2004Q3

REPORT INFORMATION
  Report Type: 
  Country: None (occurrence: None)
  Receive Date: 20040921
  Receipt Date: 20040112
  Transmission Date: 20050211
  Serious: Yes (Hospitalization)
  Sender: FDA-Public Use
  Company Number: 163-20785-04010252

PATIENT
  Age: 14 Year
  Sex: Female
  Weight: 49 kg

DRUGS (2)
  1. THALOMID [Suspect]
     Indication: ASTROCYTOMA
     Dosage: 800 MG, QD, ORAL
     Route: 048
     Dates: start: 20030923
  2. TEMOZOLOMIDE (TEMOZOLOMIDE) (UNKNOWN) [Suspect]
     Indication: ASTROCYTOMA
     Dosage: 280 M, QD X 5DAYS, ORAL
     Route: 048
     Dates: start: 20030923

REACTIONS (4)
  - FEBRILE NEUTROPENIA [None]
  - LEUKOPENIA [None]
  - NEUTROPENIA [None]
  - THROMBOCYTOPENIA [None]
